FAERS Safety Report 7093664-8 (Version None)
Quarter: 2010Q4

REPORT INFORMATION
  Report Type: 
  Country: None (occurrence: None)
  Receive Date: 20101110
  Receipt Date: 20101103
  Transmission Date: 20110411
  Serious: Yes (Death)
  Sender: FDA-Public Use
  Company Number: FR-ROCHE-738661

PATIENT
  Sex: Male
  Weight: 72 kg

DRUGS (4)
  1. BEVACIZUMAB [Suspect]
     Indication: NON-SMALL CELL LUNG CANCER
     Dosage: LAST DOSE ON 10 OCTOBER 2010
     Route: 042
     Dates: start: 20100608, end: 20101024
  2. ARIXTRA [Concomitant]
     Dates: start: 20100628
  3. SKENAN [Concomitant]
     Dates: start: 20101014
  4. MORPHINE [Concomitant]
     Dates: start: 20101014

REACTIONS (1)
  - ACUTE RESPIRATORY FAILURE [None]
